FAERS Safety Report 5867416-8 (Version None)
Quarter: 2008Q3

REPORT INFORMATION
  Report Type: 
  Country: None (occurrence: None)
  Receive Date: 20080902
  Receipt Date: 20080829
  Transmission Date: 20090109
  Serious: Yes (Death, Other)
  Sender: FDA-Public Use
  Company Number: PHHY2008IN18596

PATIENT
  Age: 70 Year
  Sex: Female

DRUGS (2)
  1. ASUNRA [Suspect]
     Indication: MYELODYSPLASTIC SYNDROME
     Dosage: 20 MG/KG, UNK
  2. LENALIDOMIDE [Concomitant]

REACTIONS (2)
  - DEATH [None]
  - SOMNOLENCE [None]
